FAERS Safety Report 12077112 (Version 2)
Quarter: 2016Q1

REPORT INFORMATION
  Report Type: Report from Study
  Country: BR (occurrence: BR)
  Receive Date: 20160215
  Receipt Date: 20160310
  Transmission Date: 20160526
  Serious: Yes (Other)
  Sender: FDA-Public Use
  Company Number: BR-BAYER-2016-023772

PATIENT
  Age: 55 Year
  Sex: Male
  Weight: 84 kg

DRUGS (9)
  1. PANTOPRAZOLE SODIUM. [Concomitant]
     Active Substance: PANTOPRAZOLE SODIUM
  2. ACTOS [Concomitant]
     Active Substance: PIOGLITAZONE HYDROCHLORIDE
  3. NEXAVAR [Suspect]
     Active Substance: SORAFENIB
     Indication: HEPATIC CANCER
     Dosage: 400 MG, OM
     Route: 048
     Dates: start: 20160121, end: 2016
  4. GLIFAGE [Concomitant]
     Active Substance: METFORMIN HYDROCHLORIDE
     Indication: TYPE 2 DIABETES MELLITUS
     Dosage: 1 DF, MT
     Route: 048
  5. INSULIN, REGULAR [INSULIN] [Concomitant]
     Indication: TYPE 2 DIABETES MELLITUS
     Dosage: UNK
     Route: 058
     Dates: start: 2009
  6. INSULIN, REGULAR [INSULIN] [Concomitant]
     Indication: TYPE 2 DIABETES MELLITUS
     Dosage: 20 UI/DAY AND MORE 20UI AS NEEDED
     Route: 058
  7. TACROLIMUS. [Concomitant]
     Active Substance: TACROLIMUS
     Indication: LIVER TRANSPLANT
     Dosage: 2 DF, BID
     Route: 048
     Dates: start: 2009
  8. NEXAVAR [Suspect]
     Active Substance: SORAFENIB
     Indication: HEPATIC CANCER
     Dosage: 100 MG, QD (HALF OF A TABLET PER DAY)
     Route: 048
     Dates: start: 201602, end: 201602
  9. NEXAVAR [Suspect]
     Active Substance: SORAFENIB
     Indication: HEPATIC CANCER
     Dosage: 100 MG, QD (HALF OF A TABLET PER DAY)
     Route: 048
     Dates: start: 201602

REACTIONS (10)
  - Cardiomyopathy [Recovering/Resolving]
  - Dry skin [Not Recovered/Not Resolved]
  - Fatigue [Not Recovered/Not Resolved]
  - Tongue dry [Not Recovered/Not Resolved]
  - Gastrointestinal disorder [Not Recovered/Not Resolved]
  - Erythema [Not Recovered/Not Resolved]
  - Blood pressure abnormal [Not Recovered/Not Resolved]
  - Pyrexia [Recovered/Resolved]
  - Blood glucose fluctuation [Not Recovered/Not Resolved]
  - Angina pectoris [Recovering/Resolving]

NARRATIVE: CASE EVENT DATE: 20160131
